FAERS Safety Report 12244096 (Version 1)
Quarter: 2016Q2

REPORT INFORMATION
  Report Type: Spontaneous
  Country: US (occurrence: US)
  Receive Date: 20160406
  Receipt Date: 20160406
  Transmission Date: 20160815
  Serious: No
  Sender: FDA-Public Use
  Company Number: US-TEVA-648542USA

PATIENT
  Age: 59 Year
  Sex: Female

DRUGS (1)
  1. COPAXONE [Suspect]
     Active Substance: GLATIRAMER ACETATE
     Indication: MULTIPLE SCLEROSIS
     Dosage: 1.9048 MILLIGRAM DAILY;
     Route: 058
     Dates: start: 20150909

REACTIONS (2)
  - Dysphagia [Unknown]
  - Diplopia [Unknown]

NARRATIVE: CASE EVENT DATE: 201603
